FAERS Safety Report 4523117-X (Version None)
Quarter: 2004Q4

REPORT INFORMATION
  Report Type: 
  Country: None (occurrence: None)
  Receive Date: 20041208
  Receipt Date: 20041122
  Transmission Date: 20050328
  Serious: Yes (Hospitalization)
  Sender: FDA-Public Use
  Company Number: 2004EU002097

PATIENT
  Age: 41 Year
  Sex: Male

DRUGS (3)
  1. PROGRAF [Suspect]
     Indication: LIVER TRANSPLANT
  2. ITRACONAZOLE [Suspect]
     Indication: HISTOPLASMOSIS DISSEMINATED
  3. AMBISOME [Suspect]
     Indication: HISTOPLASMOSIS DISSEMINATED

REACTIONS (2)
  - DRUG INTERACTION [None]
  - HISTOPLASMOSIS DISSEMINATED [None]
